FAERS Safety Report 5431000-0 (Version None)
Quarter: 2007Q3

REPORT INFORMATION
  Report Type: 
  Country: None (occurrence: None)
  Receive Date: 20070830
  Receipt Date: 20070823
  Transmission Date: 20080115
  Serious: Yes (Death)
  Sender: FDA-Public Use
  Company Number: B0484582A

PATIENT
  Age: 44 Year
  Sex: Female

DRUGS (2)
  1. LAPATINIB [Suspect]
     Dosage: 1250MG PER DAY
     Route: 048
     Dates: start: 20070709, end: 20070701
  2. CAPECITABINE [Suspect]
     Dosage: 3300MG PER DAY
     Route: 048
     Dates: start: 20070709, end: 20070701

REACTIONS (4)
  - CONDITION AGGRAVATED [None]
  - DEATH [None]
  - DYSPNOEA [None]
  - LYMPHANGITIS [None]
